FAERS Safety Report 8604224-9 (Version None)
Quarter: 2012Q3

REPORT INFORMATION
  Report Type: 
  Country: None (occurrence: None)
  Receive Date: 20120820
  Receipt Date: 20120814
  Transmission Date: 20120928
  Serious: No
  Sender: FDA-Public Use
  Company Number: US-PFIZER INC-2012198684

PATIENT
  Age: 42 Year
  Sex: Male
  Weight: 81.633 kg

DRUGS (1)
  1. ADVIL [Suspect]
     Indication: HEADACHE
     Dosage: UNK, TWO TIMES A DAY AS NEEDED
     Route: 048
     Dates: end: 20120814

REACTIONS (4)
  - PRODUCT TASTE ABNORMAL [None]
  - DIARRHOEA [None]
  - POOR QUALITY DRUG ADMINISTERED [None]
  - PRODUCT ODOUR ABNORMAL [None]
